FAERS Safety Report 5108266-X (Version None)
Quarter: 2006Q3

REPORT INFORMATION
  Report Type: 
  Country: None (occurrence: None)
  Receive Date: 20060914
  Receipt Date: 20060914
  Transmission Date: 20061208
  Serious: Yes (Hospitalization)
  Sender: FDA-Public Use
  Company Number: None

PATIENT
  Sex: Female
  Weight: 55 kg

DRUGS (3)
  1. DOXORUBICIN HYDROCHLORIDE [Suspect]
     Dosage: 38.5 MG
  2. GEMCITABINE [Suspect]
     Dosage: 1232 MG
  3. VINBLASTINE SULFATE [Suspect]
     Dosage: 9.25 MG

REACTIONS (4)
  - CHILLS [None]
  - NEUTROPENIA [None]
  - PYREXIA [None]
  - SYNCOPE [None]
